FAERS Safety Report 9840223 (Version 2)
Quarter: 2014Q1

REPORT INFORMATION
  Report Type: Spontaneous
  Country: JP (occurrence: JP)
  Receive Date: 20140124
  Receipt Date: 20140310
  Transmission Date: 20141002
  Serious: Yes (Death)
  Sender: FDA-Public Use
  Company Number: JP-JNJFOC-20140111697

PATIENT
  Age: 70 Year
  Sex: Male
  Weight: 53 kg

DRUGS (7)
  1. XARELTO [Suspect]
     Indication: CEREBROVASCULAR ACCIDENT PROPHYLAXIS
     Route: 048
     Dates: start: 20131115
  2. XARELTO [Suspect]
     Indication: ATRIAL FIBRILLATION
     Route: 048
     Dates: start: 20131115
  3. LASIX [Concomitant]
     Indication: CARDIAC FAILURE
     Route: 048
     Dates: start: 20131115
  4. ALDACTONE A [Concomitant]
     Indication: CARDIAC FAILURE
     Route: 048
     Dates: start: 20131115
  5. VASOLAN [Concomitant]
     Indication: ATRIAL FIBRILLATION
     Route: 048
     Dates: start: 20131115
  6. LANIRAPID [Concomitant]
     Indication: ATRIAL FIBRILLATION
     Route: 048
     Dates: start: 20131115
  7. MAINTATE [Concomitant]
     Indication: CARDIAC FAILURE
     Route: 048
     Dates: start: 20131115

REACTIONS (1)
  - Sudden death [Fatal]
